FAERS Safety Report 6358937-2 (Version None)
Quarter: 2009Q3

REPORT INFORMATION
  Report Type: 
  Country: None (occurrence: None)
  Receive Date: 20090914
  Receipt Date: 20090910
  Transmission Date: 20100115
  Serious: Yes (Life-Threatening, Hospitalization, Other)
  Sender: FDA-Public Use
  Company Number: GXKR2009DE10085

PATIENT
  Age: 41 Year
  Sex: Female
  Weight: 68 kg

DRUGS (2)
  1. IBUPROFEN [Suspect]
     Dosage: 2-3 TIMES WEEKLY, 1-2 TABLETS DAILY, ORAL
     Route: 048
     Dates: start: 19940101, end: 20090504
  2. NOVALGIN /SCH/(METAMIZOLE SODIUM MONOHYDRATE) [Suspect]
     Dosage: 2-3 TIMES WEEKLY, ORAL
     Route: 048
     Dates: start: 20030101, end: 20090519

REACTIONS (1)
  - THROMBOTIC THROMBOCYTOPENIC PURPURA [None]
